FAERS Safety Report 19351770 (Version 1)
Quarter: 2021Q2

REPORT INFORMATION
  Report Type: Spontaneous
  Country: US (occurrence: US)
  Receive Date: 20210601
  Receipt Date: 20210601
  Transmission Date: 20210717
  Serious: Yes (Hospitalization)
  Sender: FDA-Public Use
  Company Number: US-009507513-2105USA006562

PATIENT
  Age: 61 Year
  Sex: Male

DRUGS (1)
  1. KEYTRUDA [Suspect]
     Active Substance: PEMBROLIZUMAB
     Indication: LARYNGEAL CANCER
     Dosage: 200 MG, Q3W
     Route: 042
     Dates: start: 20190503

REACTIONS (4)
  - Surgery [Unknown]
  - Inappropriate schedule of product administration [Unknown]
  - Cardiovascular disorder [Unknown]
  - Adverse event [Unknown]

NARRATIVE: CASE EVENT DATE: 202007
